FAERS Safety Report 19329819 (Version 1)
Quarter: 2021Q2

REPORT INFORMATION
  Report Type: Spontaneous
  Country: US (occurrence: US)
  Receive Date: 20210528
  Receipt Date: 20210528
  Transmission Date: 20210717
  Serious: No
  Sender: FDA-Public Use
  Company Number: US-BAUSCH-BL-2021-018033

PATIENT
  Age: 73 Year
  Sex: Female

DRUGS (3)
  1. XIFAXAN [Suspect]
     Active Substance: RIFAXIMIN
     Indication: IRRITABLE BOWEL SYNDROME
     Dosage: TOOK THE 9 TABLETS OF XIFAXAN SAMPLES AND EVENTUALLY RAN OUT OF SAMPLES
     Route: 048
     Dates: start: 20210409, end: 202104
  2. XIFAXAN [Suspect]
     Active Substance: RIFAXIMIN
     Dosage: LOWERED DOSE TO 2 TABLETS PER DAY
     Route: 048
     Dates: start: 202104, end: 20210419
  3. XIFAXAN [Suspect]
     Active Substance: RIFAXIMIN
     Dosage: RE?START DATE: APPROXIMATELY 13/APR/2021
     Route: 048
     Dates: start: 202104, end: 202104

REACTIONS (12)
  - Chills [Recovered/Resolved]
  - Hunger [Recovered/Resolved]
  - Flatulence [Recovered/Resolved]
  - Bone pain [Recovered/Resolved]
  - Ill-defined disorder [Recovered/Resolved]
  - Abdominal pain upper [Recovered/Resolved]
  - Diarrhoea [Recovered/Resolved]
  - Pain [Recovered/Resolved]
  - Inappropriate schedule of product administration [Unknown]
  - Confusional state [Recovered/Resolved]
  - Therapy interrupted [Unknown]
  - Headache [Recovered/Resolved]

NARRATIVE: CASE EVENT DATE: 202104
